FAERS Safety Report 7540753-7 (Version None)
Quarter: 2011Q2

REPORT INFORMATION
  Report Type: 
  Country: None (occurrence: None)
  Receive Date: 20110610
  Receipt Date: 20110606
  Transmission Date: 20111010
  Serious: Yes (Other)
  Sender: FDA-Public Use
  Company Number: US-ABBOTT-11P-163-0730726-00

PATIENT
  Sex: Female
  Weight: 52.21 kg

DRUGS (6)
  1. LIPITOR [Concomitant]
     Indication: BLOOD CHOLESTEROL INCREASED
  2. LEVOTHYROXINE SODIUM [Concomitant]
     Indication: HYPOTHYROIDISM
  3. HUMIRA [Suspect]
     Indication: RHEUMATOID ARTHRITIS
     Dates: start: 20040824, end: 20110125
  4. REQUIP [Concomitant]
     Indication: PRODUCT USED FOR UNKNOWN INDICATION
  5. ZETIA [Concomitant]
     Indication: PRODUCT USED FOR UNKNOWN INDICATION
  6. FLOVENT [Concomitant]
     Indication: PRODUCT USED FOR UNKNOWN INDICATION

REACTIONS (4)
  - NODULE [None]
  - EXTRAPULMONARY TUBERCULOSIS [None]
  - MYCOBACTERIUM CHELONEI INFECTION [None]
  - OEDEMA PERIPHERAL [None]
